FAERS Safety Report 9010450 (Version 1)
Quarter: 2013Q1

REPORT INFORMATION
  Report Type: Spontaneous
  Country: US (occurrence: US)
  Receive Date: 20130109
  Receipt Date: 20130109
  Transmission Date: 20140127
  Serious: Yes (Death)
  Sender: FDA-Public Use
  Company Number: US-ASTRAZENECA-2013SE01505

PATIENT
  Age: 46 Year
  Sex: Male

DRUGS (3)
  1. QUETIAPINE [Suspect]
     Route: 065
  2. COCAINE [Suspect]
     Route: 065
  3. FLUOXETINE [Suspect]
     Route: 065

REACTIONS (2)
  - Drug abuse [Fatal]
  - Toxicity to various agents [Fatal]
